FAERS Safety Report 5628714-6 (Version None)
Quarter: 2008Q1

REPORT INFORMATION
  Report Type: 
  Country: None (occurrence: None)
  Receive Date: 20080215
  Receipt Date: 20080215
  Transmission Date: 20080703
  Serious: Yes (Other)
  Sender: FDA-Public Use
  Company Number: None

PATIENT
  Age: 20 Year
  Sex: Female
  Weight: 45.3597 kg

DRUGS (1)
  1. LEXAPRO [Suspect]
     Indication: ANXIETY
     Dosage: 10 MG 1
     Dates: start: 20080130, end: 20080214

REACTIONS (8)
  - ABDOMINAL PAIN UPPER [None]
  - CHILLS [None]
  - CRYING [None]
  - DIARRHOEA HAEMORRHAGIC [None]
  - DRUG WITHDRAWAL SYNDROME [None]
  - HYPERSOMNIA [None]
  - IMPAIRED WORK ABILITY [None]
  - MALAISE [None]
